FAERS Safety Report 6575073-0 (Version None)
Quarter: 2010Q1

REPORT INFORMATION
  Report Type: 
  Country: None (occurrence: None)
  Receive Date: 20100209
  Receipt Date: 20100129
  Transmission Date: 20100710
  Serious: Yes (Hospitalization)
  Sender: FDA-Public Use
  Company Number: US-AMGEN-TCS383589

PATIENT
  Sex: Female
  Weight: 86.3 kg

DRUGS (2)
  1. ENBREL [Suspect]
     Indication: PSORIATIC ARTHROPATHY
     Route: 058
     Dates: start: 20091218, end: 20091231
  2. PREDNISONE [Concomitant]
     Dates: start: 20091101

REACTIONS (2)
  - PSORIASIS [None]
  - PUSTULAR PSORIASIS [None]
